FAERS Safety Report 4734502-5 (Version None)
Quarter: 2005Q3

REPORT INFORMATION
  Report Type: 
  Country: None (occurrence: None)
  Receive Date: 20050804
  Receipt Date: 20050728
  Transmission Date: 20060218
  Serious: Yes (Other)
  Sender: FDA-Public Use
  Company Number: ES-SANOFI-SYNTHELABO-A01200505223

PATIENT

DRUGS (1)
  1. ELOXATIN [Suspect]
     Dosage: UNK
     Route: 065

REACTIONS (2)
  - ANGINA PECTORIS [None]
  - CORONARY ARTERY OCCLUSION [None]
